FAERS Safety Report 4529623-6 (Version None)
Quarter: 2004Q4

REPORT INFORMATION
  Report Type: 
  Country: None (occurrence: None)
  Receive Date: 20041216
  Receipt Date: 20041104
  Transmission Date: 20050328
  Serious: Yes (Life-Threatening, Disabling, Other)
  Sender: FDA-Public Use
  Company Number: US-MERCK-0411USA00756

PATIENT
  Age: 68 Year
  Sex: Female
  Weight: 48 kg

DRUGS (9)
  1. VIOXX [Suspect]
     Indication: ARTHRITIS
     Route: 048
     Dates: start: 20020101, end: 20041022
  2. PREDNISONE [Concomitant]
     Route: 065
  3. ALLEGRA-D [Concomitant]
     Route: 065
  4. LAMISIL [Concomitant]
     Route: 065
  5. PREMARIN [Concomitant]
     Route: 065
  6. SEREVENT [Concomitant]
     Route: 065
  7. COMBIVENT [Concomitant]
     Route: 065
  8. FOSAMAX [Concomitant]
     Route: 065
  9. CALCIUM (UNSPECIFIED) [Concomitant]
     Route: 065

REACTIONS (10)
  - CANDIDIASIS [None]
  - CEREBROVASCULAR ACCIDENT [None]
  - CHEST PAIN [None]
  - CREST SYNDROME [None]
  - DRY EYE [None]
  - DRY MOUTH [None]
  - HYPERTENSION [None]
  - PITUITARY TUMOUR [None]
  - SCIATICA [None]
  - WEIGHT DECREASED [None]
